FAERS Safety Report 7999559-7 (Version None)
Quarter: 2011Q4

REPORT INFORMATION
  Report Type: 
  Country: None (occurrence: None)
  Receive Date: 20111221
  Receipt Date: 20111214
  Transmission Date: 20120403
  Serious: No
  Sender: FDA-Public Use
  Company Number: US-PFIZER INC-2010102880

PATIENT
  Sex: Male
  Weight: 74.83 kg

DRUGS (7)
  1. VIAGRA [Suspect]
     Indication: ERECTILE DYSFUNCTION
     Dosage: UNK
     Route: 048
     Dates: start: 20080101
  2. LEXAPRO [Concomitant]
     Indication: ANXIETY
     Dosage: UNK
  3. NASPRO [Concomitant]
     Indication: ANXIETY
     Dosage: UNK
  4. VIAGRA [Suspect]
     Dosage: 100MG OR 150MG, AS NEEDED
     Route: 048
     Dates: end: 20110101
  5. VITAMIN D [Concomitant]
     Dosage: UNK
  6. VIAGRA [Suspect]
     Dosage: UNK, AS NEEDED
     Route: 048
     Dates: start: 20091101
  7. NAPROXEN [Concomitant]
     Indication: RHEUMATOID ARTHRITIS
     Dosage: 500 MG, DAILY

REACTIONS (2)
  - DRUG INEFFECTIVE [None]
  - INCORRECT DOSE ADMINISTERED [None]
